FAERS Safety Report 25833737 (Version 3)
Quarter: 2025Q4

REPORT INFORMATION
  Report Type: Report from Study
  Country: US (occurrence: US)
  Receive Date: 20250923
  Receipt Date: 20251218
  Transmission Date: 20260117
  Serious: Yes (Hospitalization, Other)
  Sender: ABBVIE
  Company Number: US-ABBVIE-6468951

PATIENT
  Sex: Male

DRUGS (1)
  1. RINVOQ [Suspect]
     Active Substance: UPADACITINIB
     Indication: Crohn^s disease
     Route: 048
     Dates: start: 202408

REACTIONS (6)
  - Chest pain [Unknown]
  - Dyspnoea [Unknown]
  - Bacterial sepsis [Unknown]
  - Cardiac disorder [Unknown]
  - Panic attack [Recovered/Resolved]
  - Abscess [Recovered/Resolved]
